FAERS Safety Report 5388615-8 (Version None)
Quarter: 2007Q3

REPORT INFORMATION
  Report Type: 
  Country: None (occurrence: None)
  Receive Date: 20070711
  Receipt Date: 20070626
  Transmission Date: 20080115
  Serious: Yes (Hospitalization)
  Sender: FDA-Public Use
  Company Number: S07-IRL-02108-01

PATIENT
  Age: 74 Year
  Sex: Female

DRUGS (9)
  1. LEXAPRO [Suspect]
     Indication: DEPRESSION
     Dosage: 10 MG QD PO
     Route: 048
     Dates: start: 20040810, end: 20070101
  2. CLAFORAN [Suspect]
     Indication: LOWER RESPIRATORY TRACT INFECTION
  3. DIGOXIN [Concomitant]
  4. LANSOPRAZOLE [Concomitant]
  5. METOPROLOL TARTRATE [Concomitant]
  6. DOXAZOSIN MESYLATE [Concomitant]
  7. FERROUS FUMARATE [Concomitant]
  8. MONTELUKAST SODIUM [Concomitant]
  9. WARFARIN SODIUM [Concomitant]

REACTIONS (8)
  - ARRHYTHMIA [None]
  - DEPRESSION [None]
  - HYPERTENSION [None]
  - LOWER RESPIRATORY TRACT INFECTION [None]
  - MENINGITIS [None]
  - ORAL INTAKE REDUCED [None]
  - SEROTONIN SYNDROME [None]
  - WEIGHT FLUCTUATION [None]
